FAERS Safety Report 17249989 (Version 2)
Quarter: 2020Q1

REPORT INFORMATION
  Report Type: Spontaneous
  Country: IN (occurrence: IN)
  Receive Date: 20200109
  Receipt Date: 20200124
  Transmission Date: 20200409
  Serious: Yes (Life-Threatening, Hospitalization, Other)
  Sender: FDA-Public Use
  Company Number: IN-MACLEODS PHARMACEUTICALS US LTD-MAC2019024705

PATIENT

DRUGS (7)
  1. TRAMADOL. [Suspect]
     Active Substance: TRAMADOL
     Indication: PREMEDICATION
     Dosage: 1 MILLIGRAM/KILOGRAM
     Route: 042
  2. PROPOFOL. [Suspect]
     Active Substance: PROPOFOL
     Indication: INDUCTION OF ANAESTHESIA
     Dosage: 1.5 MILLIGRAM/KILOGRAM
     Route: 042
  3. HALOTHANE. [Suspect]
     Active Substance: HALOTHANE
     Indication: MAINTENANCE OF ANAESTHESIA
     Dosage: HALOTHANE 0.4-1% IN 50% N2O IN OXYGEN
     Route: 065
  4. MIDAZOLAM HYDROCHLORIDE. [Suspect]
     Active Substance: MIDAZOLAM HYDROCHLORIDE
     Indication: SEIZURE
     Dosage: UNK, INFUSION
     Route: 065
  5. GLYCOPYRROLATE. [Concomitant]
     Active Substance: GLYCOPYRROLATE
     Indication: ANTIBIOTIC THERAPY
     Dosage: 4 MICROGRAM/KILOGRAM
     Route: 042
  6. MIDAZOLAM HYDROCHLORIDE. [Suspect]
     Active Substance: MIDAZOLAM HYDROCHLORIDE
     Indication: PREMEDICATION
     Dosage: 0.05 MILLIGRAM/KILOGRAM
     Route: 042
  7. ROCURONIUM [Suspect]
     Active Substance: ROCURONIUM BROMIDE
     Indication: PRODUCT USED FOR UNKNOWN INDICATION
     Dosage: 0.8 MILLIGRAM/KILOGRAM
     Route: 042

REACTIONS (5)
  - Oxygen saturation decreased [Recovered/Resolved]
  - Depressed level of consciousness [Recovering/Resolving]
  - Bradycardia [Recovered/Resolved]
  - Seizure [Recovered/Resolved]
  - Respiratory acidosis [Recovered/Resolved]
